FAERS Safety Report 12117552 (Version 1)
Quarter: 2016Q1

REPORT INFORMATION
  Report Type: Spontaneous
  Country: US (occurrence: US)
  Receive Date: 20160226
  Receipt Date: 20160226
  Transmission Date: 20160526
  Serious: Yes (Other)
  Sender: FDA-Public Use
  Company Number: US-AMGEN-USASP2016021770

PATIENT
  Age: 50 Year
  Sex: Female

DRUGS (3)
  1. VITAMIN B12 [Concomitant]
     Active Substance: CYANOCOBALAMIN
     Dosage: UNK
  2. ENBREL [Suspect]
     Active Substance: ETANERCEPT
     Indication: RHEUMATOID ARTHRITIS
     Dosage: UNK
     Route: 065
  3. HUMIRA [Suspect]
     Active Substance: ADALIMUMAB
     Indication: PRODUCT USED FOR UNKNOWN INDICATION
     Dosage: UNK
     Route: 065

REACTIONS (14)
  - Tremor [Unknown]
  - Dyspnoea [Unknown]
  - Myocardial infarction [Unknown]
  - Sluggishness [Recovering/Resolving]
  - Diabetes mellitus [Unknown]
  - Skin lesion [Unknown]
  - Blood pressure abnormal [Unknown]
  - Heart rate abnormal [Unknown]
  - Feeling abnormal [Not Recovered/Not Resolved]
  - Fear of injection [Not Recovered/Not Resolved]
  - Mobility decreased [Unknown]
  - Arthritis [Unknown]
  - Visual impairment [Unknown]
  - Device issue [Unknown]
